FAERS Safety Report 25081622 (Version 3)
Quarter: 2025Q2

REPORT INFORMATION
  Report Type: Report from Study
  Country: US (occurrence: US)
  Receive Date: 20250316
  Receipt Date: 20250421
  Transmission Date: 20250717
  Serious: No
  Sender: SANDOZ
  Company Number: US-SANDOZ-SDZ2025US015232

PATIENT
  Sex: Male

DRUGS (4)
  1. OMNITROPE [Suspect]
     Active Substance: SOMATROPIN
     Indication: Short stature
     Dosage: 2.2 MG, QD (STRENGTH: 10 MG/1.5 ML SOLUTION FOR INJECTION IN CARTRIDGE)
     Route: 058
  2. OMNITROPE [Suspect]
     Active Substance: SOMATROPIN
     Indication: Short stature
     Dosage: 2.2 MG, QD (STRENGTH: 10 MG/1.5 ML SOLUTION FOR INJECTION IN CARTRIDGE)
     Route: 058
  3. OMNITROPE [Suspect]
     Active Substance: SOMATROPIN
     Dosage: 0.44 ML, QD
     Route: 058
     Dates: start: 20250313
  4. OMNITROPE [Suspect]
     Active Substance: SOMATROPIN
     Dosage: 0.44 ML, QD
     Route: 058
     Dates: start: 20250313

REACTIONS (7)
  - Injection site discomfort [Unknown]
  - Device difficult to use [Unknown]
  - Wrong technique in device usage process [Unknown]
  - Device physical property issue [Unknown]
  - Device breakage [Unknown]
  - Drug dose omission by device [Unknown]
  - Needle issue [Unknown]
